FAERS Safety Report 20953807 (Version 1)
Quarter: 2022Q2

REPORT INFORMATION
  Report Type: Spontaneous
  Country: CA (occurrence: CA)
  Receive Date: 20220614
  Receipt Date: 20220614
  Transmission Date: 20220721
  Serious: Yes (Hospitalization, Other)
  Sender: FDA-Public Use
  Company Number: CA-ABBVIE-22K-028-4427102-00

PATIENT
  Age: 31 Year
  Sex: Female

DRUGS (7)
  1. HUMIRA [Suspect]
     Active Substance: ADALIMUMAB
     Indication: Crohn^s disease
     Route: 058
  2. INFLECTRA [Suspect]
     Active Substance: INFLIXIMAB-DYYB
     Indication: Crohn^s disease
     Dosage: 5MG/KG?0, 2 AND 6, EVERY 8 WEEKS
     Route: 042
     Dates: start: 20180831, end: 20181009
  3. INFLECTRA [Suspect]
     Active Substance: INFLIXIMAB-DYYB
     Dosage: 7.5MG/KG
     Route: 042
     Dates: start: 20181201, end: 20190322
  4. METHOTREXATE [Concomitant]
     Active Substance: METHOTREXATE
     Indication: Product used for unknown indication
  5. VEDOLIZUMAB [Concomitant]
     Active Substance: VEDOLIZUMAB
     Indication: Product used for unknown indication
     Dates: end: 20220518
  6. PREDNISONE [Concomitant]
     Active Substance: PREDNISONE
     Indication: Product used for unknown indication
     Route: 048
     Dates: end: 20220528
  7. PREDNISONE [Concomitant]
     Active Substance: PREDNISONE
     Dates: start: 20220604

REACTIONS (15)
  - Lupus-like syndrome [Unknown]
  - Endoscopy gastrointestinal abnormal [Unknown]
  - Fistulotomy [Recovered/Resolved]
  - Clostridium difficile infection [Unknown]
  - Diarrhoea [Unknown]
  - Fistulotomy [Unknown]
  - Rheumatic disorder [Recovered/Resolved]
  - Colon injury [Unknown]
  - General symptom [Unknown]
  - Anal fistula [Unknown]
  - Cyst [Unknown]
  - C-reactive protein decreased [Unknown]
  - Arthralgia [Recovered/Resolved]
  - Abdominal pain [Unknown]
  - Hepatic cytolysis [Recovered/Resolved]

NARRATIVE: CASE EVENT DATE: 20181201
